FAERS Safety Report 9318180 (Version 1)
Quarter: 2013Q2

REPORT INFORMATION
  Report Type: Spontaneous
  Country: US (occurrence: US)
  Receive Date: 20130530
  Receipt Date: 20130530
  Transmission Date: 20140414
  Serious: No
  Sender: FDA-Public Use
  Company Number: US-NOVEN-13US006523

PATIENT
  Sex: Male

DRUGS (3)
  1. DAYTRANA [Suspect]
     Indication: DISTURBANCE IN ATTENTION
     Dosage: 10 MG, UNK
     Route: 062
  2. DAYTRANA [Suspect]
     Dosage: 15 MG, UNK
     Route: 062
     Dates: start: 2012
  3. DAYTRANA [Suspect]
     Dosage: 10 MG, UNK
     Route: 062
     Dates: end: 2012

REACTIONS (4)
  - Tremor [Recovered/Resolved]
  - Decreased appetite [Recovered/Resolved]
  - Wrong technique in drug usage process [Unknown]
  - Off label use [Not Recovered/Not Resolved]
